FAERS Safety Report 18368475 (Version 1)
Quarter: 2020Q4

REPORT INFORMATION
  Report Type: Spontaneous
  Country: US (occurrence: US)
  Receive Date: 20201010
  Receipt Date: 20201010
  Transmission Date: 20210114
  Serious: Yes (Other)
  Sender: FDA-Public Use
  Company Number: US-ROCHE-2692704

PATIENT
  Sex: Male
  Weight: 106.69 kg

DRUGS (15)
  1. RITUXAN [Suspect]
     Active Substance: RITUXIMAB
     Indication: LYMPHOMA
     Dosage: ONCE WEEKLY FOR FOUR WEEKS
     Route: 042
     Dates: start: 20111020
  2. MELATONIN [Concomitant]
     Active Substance: MELATONIN
  3. VITAMIN B12 [Concomitant]
     Active Substance: CYANOCOBALAMIN
  4. REPATHA [Concomitant]
     Active Substance: EVOLOCUMAB
     Indication: BLOOD CHOLESTEROL INCREASED
     Dosage: 140 MG/ML
     Dates: start: 20200127
  5. GABAPENTIN. [Concomitant]
     Active Substance: GABAPENTIN
     Dates: start: 20161123
  6. HYDROXYZINE [Concomitant]
     Active Substance: HYDROXYZINE HYDROCHLORIDE
     Dates: start: 20100101
  7. ASPIRIN. [Concomitant]
     Active Substance: ASPIRIN
     Dates: start: 20150817
  8. MEGESTROL [Concomitant]
     Active Substance: MEGESTROL
     Indication: HOT FLUSH
     Dates: start: 20161222
  9. AMBIEN [Concomitant]
     Active Substance: ZOLPIDEM TARTRATE
     Indication: INSOMNIA
     Dosage: TAKEN RARELY
  10. XTANDI [Concomitant]
     Active Substance: ENZALUTAMIDE
     Indication: PROSTATE CANCER
     Dates: start: 20190207
  11. GLUCOSAMINE CHONDROITIN MSM [Concomitant]
  12. ELDERBERRY [Concomitant]
     Active Substance: HERBALS
     Indication: INFLAMMATION
  13. VITAMIN D3 [Concomitant]
     Active Substance: CHOLECALCIFEROL
     Indication: OSTEOPENIA
  14. GINKGO BILOBA [Concomitant]
     Active Substance: GINKGO
  15. OMEPRAZOLE. [Concomitant]
     Active Substance: OMEPRAZOLE
     Indication: BARRETT^S OESOPHAGUS
     Dates: start: 20100101

REACTIONS (7)
  - Pollakiuria [Not Recovered/Not Resolved]
  - Incontinence [Recovering/Resolving]
  - Myocardial infarction [Unknown]
  - Off label use [Unknown]
  - Intentional product use issue [Unknown]
  - Arterial occlusive disease [Unknown]
  - Hypothyroidism [Unknown]

NARRATIVE: CASE EVENT DATE: 2015
